FAERS Safety Report 8426297-9 (Version None)
Quarter: 2012Q2

REPORT INFORMATION
  Report Type: 
  Country: None (occurrence: None)
  Receive Date: 20120611
  Receipt Date: 20120525
  Transmission Date: 20120825
  Serious: Yes (Other)
  Sender: FDA-Public Use
  Company Number: GR-SANOFI-AVENTIS-2012SA038608

PATIENT

DRUGS (1)
  1. CLOPIDOGREL BISULFATE [Suspect]
     Indication: ANTIPLATELET THERAPY
     Dosage: VIA NASOGATRIC CATHETER
     Route: 048

REACTIONS (2)
  - EMBOLISM [None]
  - HAEMORRHAGE [None]
